FAERS Safety Report 5354335-9 (Version None)
Quarter: 2007Q2

REPORT INFORMATION
  Report Type: 
  Country: None (occurrence: None)
  Receive Date: 20070612
  Receipt Date: 20070601
  Transmission Date: 20071010
  Serious: Yes (Hospitalization)
  Sender: FDA-Public Use
  Company Number: SE-JNJFOC-20070601043

PATIENT
  Age: 43 Year
  Sex: Male
  Weight: 97 kg

DRUGS (7)
  1. REMICADE [Suspect]
     Route: 042
  2. REMICADE [Suspect]
     Route: 042
  3. REMICADE [Suspect]
     Indication: CROHN'S DISEASE
     Route: 042
  4. WARFARIN SODIUM [Concomitant]
  5. NEXIUM [Concomitant]
  6. ASACOL [Concomitant]
  7. AZATHIOPRINE [Concomitant]

REACTIONS (8)
  - C-REACTIVE PROTEIN INCREASED [None]
  - FATIGUE [None]
  - LUNG CONSOLIDATION [None]
  - LYMPHADENOPATHY [None]
  - OXYGEN SATURATION DECREASED [None]
  - PYREXIA [None]
  - TACHYPNOEA [None]
  - VOMITING [None]
